FAERS Safety Report 5876050-5 (Version None)
Quarter: 2008Q3

REPORT INFORMATION
  Report Type: 
  Country: None (occurrence: None)
  Receive Date: 20080905
  Receipt Date: 20080825
  Transmission Date: 20090109
  Serious: Yes (Hospitalization)
  Sender: FDA-Public Use
  Company Number: 1000000714

PATIENT
  Age: 80 Year
  Sex: Female

DRUGS (6)
  1. MEMANTINE HCL [Suspect]
     Indication: DEMENTIA ALZHEIMER'S TYPE
     Dosage: 10 MG (10 MG, 1 IN 1 D), ORAL
     Route: 048
     Dates: start: 20070615, end: 20071121
  2. OMEPRAZOLE [Suspect]
     Dates: start: 20070518, end: 20071121
  3. ADIRO (100 MILLIGRAM, TABLETS) [Suspect]
     Dosage: (100 MG), ORAL
     Route: 048
     Dates: start: 20021118, end: 20071121
  4. DEPRAX (100 MILLIGRAM, TABLETS) [Suspect]
     Indication: DEMENTIA ALZHEIMER'S TYPE
     Dosage: 100 MG (100 MG, 1 IN 1 D), ORAL
     Route: 048
     Dates: start: 20070615, end: 20071121
  5. EXELON [Suspect]
     Indication: DEMENTIA ALZHEIMER'S TYPE
     Dosage: (3 MG) ,ORAL
     Route: 048
     Dates: start: 20021118, end: 20071121
  6. LANTUS [Suspect]
     Indication: DIABETES MELLITUS
     Dosage: (100 IU)
     Dates: start: 20070917, end: 20071121

REACTIONS (1)
  - HEPATITIS TOXIC [None]
